FAERS Safety Report 8462569-X (Version None)
Quarter: 2012Q2

REPORT INFORMATION
  Report Type: 
  Country: None (occurrence: None)
  Receive Date: 20120619
  Receipt Date: 20120619
  Transmission Date: 20120825
  Serious: Yes (Life-Threatening, Other)
  Sender: FDA-Public Use
  Company Number: None

PATIENT

DRUGS (1)
  1. PRADAXA ALL BOEBRINGER INGELREIM [Suspect]
     Dosage: PRADAXA BID

REACTIONS (1)
  - NO ADVERSE EVENT [None]
